FAERS Safety Report 17904513 (Version 1)
Quarter: 2020Q2

REPORT INFORMATION
  Report Type: Spontaneous
  Country: ES (occurrence: ES)
  Receive Date: 20200617
  Receipt Date: 20200617
  Transmission Date: 20200714
  Serious: Yes (Hospitalization)
  Sender: FDA-Public Use
  Company Number: ES-ACCORD-185438

PATIENT
  Age: 78 Year
  Sex: Female

DRUGS (5)
  1. PRANZO [CARNITINE HYDROCHLORIDE\CYPROHEPTADINE HYDROCHLORIDE\LYSINE HYDROCHLORIDE] [Suspect]
     Active Substance: CARNITINE CHLORIDE\CYPROHEPTADINE HYDROCHLORIDE\LYSINE HYDROCHLORIDE
     Indication: DECREASED APPETITE
     Dosage: STRENGTH: 62,5 / 1,25 / 0,5 MG/ML ORAL SOLUTION, 1 BOTTLE OF 200 ML
     Route: 048
     Dates: start: 202004, end: 20200427
  2. DISTRANEURINE [Concomitant]
     Active Substance: CLOMETHIAZOLE
  3. SERTRALINE [Suspect]
     Active Substance: SERTRALINE HYDROCHLORIDE
     Indication: PRODUCT USED FOR UNKNOWN INDICATION
     Route: 048
     Dates: start: 20200305, end: 20200518
  4. MANTINEX [Suspect]
     Active Substance: MEMANTINE
     Indication: COGNITIVE DISORDER
     Dosage: STRENGTH: 20 MG FILM-COATED TABLETS EFG, 56 TABLETS
     Route: 048
     Dates: start: 20200305, end: 20200518
  5. PARACETAMOL [Concomitant]
     Active Substance: ACETAMINOPHEN
     Dosage: (12A)

REACTIONS (1)
  - Hepatitis cholestatic [Unknown]

NARRATIVE: CASE EVENT DATE: 20200427
